FAERS Safety Report 14126127 (Version 1)
Quarter: 2017Q4

REPORT INFORMATION
  Report Type: Spontaneous
  Country: US (occurrence: US)
  Receive Date: 20171025
  Receipt Date: 20171025
  Transmission Date: 20180321
  Serious: Yes (Other)
  Sender: FDA-Public Use
  Company Number: US-TEVA-819895USA

PATIENT
  Sex: Female

DRUGS (1)
  1. METHYLDOPA. [Suspect]
     Active Substance: METHYLDOPA
     Route: 065

REACTIONS (3)
  - Myocardial infarction [Unknown]
  - Insomnia [Unknown]
  - Blood pressure increased [Unknown]
